FAERS Safety Report 21213759 (Version 1)
Quarter: 2022Q3

REPORT INFORMATION
  Report Type: Other
  Country: CH (occurrence: None)
  Receive Date: 20220816
  Receipt Date: 20220816
  Transmission Date: 20221027
  Serious: Yes (Hospitalization, Other)
  Sender: FDA-Public Use
  Company Number: CH-Inventia-000196

PATIENT
  Age: 50 Year
  Sex: Male

DRUGS (4)
  1. FLUOXETINE [Suspect]
     Active Substance: FLUOXETINE HYDROCHLORIDE
     Indication: Depression
     Dosage: 40 MG/D
  2. TRIMIPRAMINE [Concomitant]
     Active Substance: TRIMIPRAMINE
     Indication: Somnolence
     Dosage: 50 MG/D
  3. PREGABALIN [Concomitant]
     Active Substance: PREGABALIN
     Indication: Restlessness
  4. PREGABALIN [Concomitant]
     Active Substance: PREGABALIN
     Indication: Muscle strain

REACTIONS (2)
  - Therapy non-responder [Recovered/Resolved]
  - Major depression [Recovered/Resolved]
